FAERS Safety Report 5786218-4 (Version None)
Quarter: 2008Q2

REPORT INFORMATION
  Report Type: 
  Country: None (occurrence: None)
  Receive Date: 20080624
  Receipt Date: 20070815
  Transmission Date: 20081010
  Serious: No
  Sender: FDA-Public Use
  Company Number: US-ASTRAZENECA-2007UW19690

PATIENT
  Age: 78 Year
  Sex: Female
  Weight: 56.2 kg

DRUGS (3)
  1. PULMICORT RESPULES [Suspect]
     Indication: BRONCHITIS CHRONIC
     Dosage: 0.5 MG/2 ML
     Route: 055
     Dates: start: 20070201
  2. PULMICORT RESPULES [Suspect]
     Indication: CHRONIC OBSTRUCTIVE PULMONARY DISEASE
     Dosage: 0.5 MG/2 ML
     Route: 055
     Dates: start: 20070201
  3. ALBUTEROL [Concomitant]

REACTIONS (1)
  - GLOSSODYNIA [None]
